FAERS Safety Report 8242824-9 (Version None)
Quarter: 2012Q1

REPORT INFORMATION
  Report Type: 
  Country: None (occurrence: None)
  Receive Date: 20120314
  Receipt Date: 20100429
  Transmission Date: 20120608
  Serious: Yes (Other)
  Sender: FDA-Public Use
  Company Number: PHHY2010US330679

PATIENT

DRUGS (1)
  1. FANAPT [Suspect]
     Dosage: ORAL
     Route: 048

REACTIONS (2)
  - MOTOR DYSFUNCTION [None]
  - COGNITIVE DISORDER [None]
